FAERS Safety Report 8523181-7 (Version None)
Quarter: 2012Q3

REPORT INFORMATION
  Report Type: 
  Country: None (occurrence: None)
  Receive Date: 20120713
  Receipt Date: 20120713
  Transmission Date: 20120928
  Serious: Yes (Other)
  Sender: FDA-Public Use
  Company Number: None

PATIENT
  Age: 63 Year
  Sex: Female
  Weight: 86.1834 kg

DRUGS (1)
  1. LYRICA [Suspect]
     Indication: NEUROPATHY PERIPHERAL
     Dosage: 50 MG 2/ DAY PO
     Route: 048
     Dates: start: 20120530, end: 20120616

REACTIONS (2)
  - TOOTH DISCOLOURATION [None]
  - TOOTH FRACTURE [None]
